FAERS Safety Report 6386140-9 (Version None)
Quarter: 2009Q4

REPORT INFORMATION
  Report Type: 
  Country: None (occurrence: None)
  Receive Date: 20091002
  Receipt Date: 20090204
  Transmission Date: 20100525
  Serious: No
  Sender: FDA-Public Use
  Company Number: US-ASTRAZENECA-2008UW28759

PATIENT
  Age: 59 Year
  Sex: Female

DRUGS (1)
  1. ARIMIDEX [Suspect]
     Dosage: UNKNOWN
     Route: 048

REACTIONS (2)
  - PRODUCT QUALITY ISSUE [None]
  - TENDONITIS [None]
